FAERS Safety Report 5544024-X (Version None)
Quarter: 2007Q4

REPORT INFORMATION
  Report Type: 
  Country: None (occurrence: None)
  Receive Date: 20071210
  Receipt Date: 20070228
  Transmission Date: 20080405
  Serious: No
  Sender: FDA-Public Use
  Company Number: US-AMGEN-KDL200077

PATIENT
  Sex: Female

DRUGS (1)
  1. ENBREL [Suspect]
     Indication: RHEUMATOID ARTHRITIS
     Route: 058
     Dates: start: 20061019

REACTIONS (5)
  - INJECTION SITE IRRITATION [None]
  - INJECTION SITE REACTION [None]
  - JOINT SWELLING [None]
  - OEDEMA PERIPHERAL [None]
  - RASH ERYTHEMATOUS [None]
